FAERS Safety Report 25198889 (Version 1)
Quarter: 2025Q2

REPORT INFORMATION
  Report Type: Report from Study
  Country: IL (occurrence: IL)
  Receive Date: 20250415
  Receipt Date: 20250415
  Transmission Date: 20250716
  Serious: Yes (Hospitalization)
  Sender: ABBVIE
  Company Number: IL-ABBVIE-6227007

PATIENT
  Age: 75 Year
  Sex: Female

DRUGS (1)
  1. LEVONORGESTREL [Suspect]
     Active Substance: LEVONORGESTREL
     Indication: Endometrial adenocarcinoma
     Route: 015

REACTIONS (2)
  - Haemorrhage [Recovered/Resolved]
  - Anaemia [Recovered/Resolved]
